FAERS Safety Report 7571323-2 (Version None)
Quarter: 2011Q2

REPORT INFORMATION
  Report Type: 
  Country: None (occurrence: None)
  Receive Date: 20110624
  Receipt Date: 20090916
  Transmission Date: 20111010
  Serious: Yes (Other)
  Sender: FDA-Public Use
  Company Number: B0593985A

PATIENT
  Sex: Female

DRUGS (5)
  1. VALPROIC ACID [Concomitant]
     Indication: EPILEPSY
     Dosage: 1050MG PER DAY
     Route: 048
     Dates: start: 20061121
  2. PHENOBARBITAL TAB [Concomitant]
     Indication: EPILEPSY
     Dosage: 100MG PER DAY
     Route: 048
     Dates: start: 20071023
  3. TOPIRAMATE [Concomitant]
     Indication: EPILEPSY
     Dosage: 300MG PER DAY
     Route: 048
     Dates: start: 20081001
  4. LAMICTAL [Suspect]
     Indication: EPILEPSY
     Dosage: 25MG PER DAY
     Route: 048
     Dates: start: 20090818, end: 20090831
  5. LAMICTAL [Suspect]
     Dosage: 25MG PER DAY
     Route: 048
     Dates: start: 20090901, end: 20090910

REACTIONS (14)
  - RASH [None]
  - CHEILITIS [None]
  - ALANINE AMINOTRANSFERASE INCREASED [None]
  - BLOOD LACTATE DEHYDROGENASE INCREASED [None]
  - ORAL PAIN [None]
  - TOXIC SKIN ERUPTION [None]
  - STEVENS-JOHNSON SYNDROME [None]
  - GAMMA-GLUTAMYLTRANSFERASE INCREASED [None]
  - ASPARTATE AMINOTRANSFERASE INCREASED [None]
  - CONJUNCTIVAL HYPERAEMIA [None]
  - DRUG ERUPTION [None]
  - ERYTHEMA [None]
  - ULCER [None]
  - HAEMATOCRIT DECREASED [None]
